FAERS Safety Report 5967469-2 (Version None)
Quarter: 2008Q4

REPORT INFORMATION
  Report Type: 
  Country: None (occurrence: None)
  Receive Date: 20081125
  Receipt Date: 20081114
  Transmission Date: 20090506
  Serious: Yes (Other)
  Sender: FDA-Public Use
  Company Number: FR-PFIZER INC-2008097141

PATIENT
  Age: 75 Year
  Sex: Female

DRUGS (3)
  1. LYRICA [Suspect]
     Dates: start: 20080501
  2. FLUDEX [Concomitant]
  3. PROPRANOLOL [Concomitant]

REACTIONS (1)
  - NEUTROPENIA [None]
